FAERS Safety Report 6299673-0 (Version None)
Quarter: 2009Q3

REPORT INFORMATION
  Report Type: 
  Country: None (occurrence: None)
  Receive Date: 20090806
  Receipt Date: 20090729
  Transmission Date: 20100115
  Serious: Yes (Disabling)
  Sender: FDA-Public Use
  Company Number: BR-BAYER-200919920LA

PATIENT
  Age: 45 Year
  Sex: Male

DRUGS (3)
  1. BETAFERON [Suspect]
     Indication: SECONDARY PROGRESSIVE MULTIPLE SCLEROSIS
     Dosage: BETAJECT
     Route: 058
     Dates: start: 20081208
  2. LIORESAL [Concomitant]
     Indication: MUSCLE SPASTICITY
     Dosage: 6 TABLETS DAILY
     Route: 048
     Dates: start: 20081208
  3. NIMESULIDE [Concomitant]
     Indication: ANTIINFLAMMATORY THERAPY
     Dosage: 1 TABLET BEFORE BETAFERON INJECTIONS
     Route: 048
     Dates: start: 20081208

REACTIONS (5)
  - BALANCE DISORDER [None]
  - FALL [None]
  - MOBILITY DECREASED [None]
  - PYREXIA [None]
  - WHEELCHAIR USER [None]
